FAERS Safety Report 7046850-7 (Version None)
Quarter: 2010Q4

REPORT INFORMATION
  Report Type: 
  Country: None (occurrence: None)
  Receive Date: 20101015
  Receipt Date: 20101004
  Transmission Date: 20110411
  Serious: Yes (Hospitalization)
  Sender: FDA-Public Use
  Company Number: CA-JNJFOC-20101001758

PATIENT
  Age: 58 Year
  Sex: Female
  Weight: 75 kg

DRUGS (7)
  1. INFLIXIMAB, RECOMBINANT [Suspect]
     Indication: PSORIASIS
     Dosage: 5 MG/KG; 7 OF 8
     Route: 042
  2. INFLIXIMAB, RECOMBINANT [Suspect]
     Dosage: 5 MG/KG
     Route: 042
  3. FIORINAL NOS [Concomitant]
     Indication: MIGRAINE
     Route: 048
  4. PARIET [Concomitant]
     Indication: GASTROOESOPHAGEAL REFLUX DISEASE
     Route: 048
  5. EFFEXOR [Concomitant]
     Indication: DEPRESSION
     Route: 048
  6. AMITRIPTYLINE [Concomitant]
     Indication: INSOMNIA
     Route: 048
  7. LORAZEPAM [Concomitant]
     Indication: INSOMNIA
     Route: 048

REACTIONS (1)
  - BENIGN OVARIAN TUMOUR [None]
